FAERS Safety Report 8330334-X (Version None)
Quarter: 2012Q2

REPORT INFORMATION
  Report Type: 
  Country: None (occurrence: None)
  Receive Date: 20120502
  Receipt Date: 20120426
  Transmission Date: 20120825
  Serious: Yes (Other)
  Sender: FDA-Public Use
  Company Number: DE-ACTELION-A-US2012-64884

PATIENT

DRUGS (2)
  1. VENTAVIS [Suspect]
     Indication: PULMONARY ARTERIAL HYPERTENSION
     Dosage: 2.5 UG, Q4H
     Route: 055
     Dates: start: 20110104, end: 20120405
  2. BISOPROLOL FUMARATE [Suspect]
     Route: 048

REACTIONS (3)
  - GINGIVITIS [None]
  - TOOTH EXTRACTION [None]
  - LYMPHADENOPATHY [None]
